FAERS Safety Report 4899249-3 (Version None)
Quarter: 2006Q1

REPORT INFORMATION
  Report Type: 
  Country: None (occurrence: None)
  Receive Date: 20060106
  Receipt Date: 20050128
  Transmission Date: 20060701
  Serious: Yes (Other)
  Sender: FDA-Public Use
  Company Number: HQWYE073303FEB05

PATIENT
  Sex: Male

DRUGS (1)
  1. PRIMATENE MIST [Suspect]
     Indication: ASTHMA
     Dosage: 1 TO 2 PUFFS, THREE TO FOUR TIMES DAILY, INHALATION
     Route: 055

REACTIONS (1)
  - HEADACHE [None]
